FAERS Safety Report 17024695 (Version 1)
Quarter: 2019Q4

REPORT INFORMATION
  Report Type: Spontaneous
  Country: US (occurrence: US)
  Receive Date: 20191113
  Receipt Date: 20191113
  Transmission Date: 20200122
  Serious: No
  Sender: FDA-Public Use
  Company Number: US-GILEAD-2019-0437322

PATIENT
  Sex: Male

DRUGS (9)
  1. SOFOSBUVIR;VELPATASVIR [Suspect]
     Active Substance: SOFOSBUVIR\VELPATASVIR
     Indication: CHRONIC HEPATITIS C
     Dosage: 1 DOSAGE FORM, QD
     Route: 048
     Dates: start: 201906, end: 20190801
  2. SAW PALMETTO [SERENOA REPENS FRUIT] [Concomitant]
  3. VITAMIN B12 [COBAMAMIDE] [Concomitant]
  4. MAGNESIUM [Concomitant]
     Active Substance: MAGNESIUM
  5. CALCIUM [Concomitant]
     Active Substance: CALCIUM
  6. MULTIVIT [VITAMINS NOS] [Concomitant]
  7. EPCLUSA [Suspect]
     Active Substance: SOFOSBUVIR\VELPATASVIR
     Indication: CHRONIC HEPATITIS C
     Dosage: 1 DOSAGE FORM, QD
     Route: 048
     Dates: start: 201905
  8. FISH OIL [Concomitant]
     Active Substance: FISH OIL
  9. ZINC. [Concomitant]
     Active Substance: ZINC

REACTIONS (3)
  - Seasonal affective disorder [Not Recovered/Not Resolved]
  - Intentional dose omission [Recovered/Resolved]
  - Fatigue [Unknown]
